FAERS Safety Report 4370452-4 (Version None)
Quarter: 2004Q2

REPORT INFORMATION
  Report Type: 
  Country: None (occurrence: None)
  Receive Date: 20040603
  Receipt Date: 20031222
  Transmission Date: 20050107
  Serious: No
  Sender: FDA-Public Use
  Company Number: US-BRISTOL-MYERS SQUIBB COMPANY-12463915

PATIENT
  Age: 46 Year
  Sex: Female

DRUGS (5)
  1. ABILIFY [Suspect]
     Indication: BIPOLAR DISORDER
     Dosage: 5MG 12-DEC-2003 TO 13-DEC-2003; INCR. TO 7.5MG FOR 5 DAYS; DECREASED TO 5MG 19-DEC TO 22-DEC.
     Route: 048
     Dates: start: 20031203, end: 20031222
  2. LAMICTAL [Concomitant]
  3. TRILEPTAL [Concomitant]
     Dates: start: 20030923
  4. LORAZEPAM [Concomitant]
     Dosage: 1-2 MG
     Dates: start: 20031028
  5. AMBIEN [Concomitant]
     Dates: start: 20031028

REACTIONS (1)
  - URINARY INCONTINENCE [None]
